FAERS Safety Report 9410408 (Version 1)
Quarter: 2013Q3

REPORT INFORMATION
  Report Type: Spontaneous
  Country: US (occurrence: None)
  Receive Date: 20130718
  Receipt Date: 20130718
  Transmission Date: 20140515
  Serious: No
  Sender: FDA-Public Use
  Company Number: None

PATIENT
  Sex: Female

DRUGS (1)
  1. ENBREL [Suspect]
     Dosage: 50MG EVERY WEEK SUBQ
     Route: 058
     Dates: start: 20130530

REACTIONS (2)
  - Vision blurred [None]
  - Visual field defect [None]
